FAERS Safety Report 16332513 (Version 2)
Quarter: 2019Q3

REPORT INFORMATION
  Report Type: Spontaneous
  Country: US (occurrence: US)
  Receive Date: 20190520
  Receipt Date: 20190807
  Transmission Date: 20191004
  Serious: No
  Sender: FDA-Public Use
  Company Number: US-PFIZER INC-2019209655

PATIENT
  Age: 62 Year
  Sex: Female
  Weight: 113.4 kg

DRUGS (3)
  1. DULOXETINE. [Suspect]
     Active Substance: DULOXETINE
     Dosage: UNK, 1X/DAY
     Dates: start: 2016, end: 2017
  2. DULOXETINE. [Suspect]
     Active Substance: DULOXETINE
     Indication: PAIN
     Dosage: 60 MG, UNK
  3. GABAPENTIN. [Suspect]
     Active Substance: GABAPENTIN
     Indication: PAIN
     Dosage: UNK, 1X/DAY (ONCE AT BED TIME)
     Dates: start: 2016, end: 2016

REACTIONS (1)
  - Drug ineffective [Unknown]
